FAERS Safety Report 5942156-5 (Version None)
Quarter: 2008Q4

REPORT INFORMATION
  Report Type: 
  Country: None (occurrence: None)
  Receive Date: 20081104
  Receipt Date: 20081104
  Transmission Date: 20090506
  Serious: Yes (Other)
  Sender: FDA-Public Use
  Company Number: None

PATIENT
  Age: 56 Year
  Sex: Female
  Weight: 58.9676 kg

DRUGS (4)
  1. GENERIC LAMOTRIGINE 200MG; TEVA [Suspect]
     Indication: BIPOLAR DISORDER
     Dosage: 200MG ONE DAILY ORAL
     Route: 048
     Dates: start: 20080826
  2. GENERIC LAMOTRIGINE 200MG; TEVA [Suspect]
     Indication: DEPRESSION
     Dosage: 200MG ONE DAILY ORAL
     Route: 048
     Dates: start: 20080826
  3. ADDERALL XR 30 [Concomitant]
  4. CLONAZEPAM [Concomitant]

REACTIONS (7)
  - CRYING [None]
  - DEPRESSED MOOD [None]
  - DISTURBANCE IN ATTENTION [None]
  - FEELING GUILTY [None]
  - IMPAIRED WORK ABILITY [None]
  - IRRITABILITY [None]
  - THERAPEUTIC RESPONSE UNEXPECTED WITH DRUG SUBSTITUTION [None]
